FAERS Safety Report 4308838-6 (Version None)
Quarter: 2004Q1

REPORT INFORMATION
  Report Type: 
  Country: None (occurrence: None)
  Receive Date: 20040227
  Receipt Date: 20040220
  Transmission Date: 20041129
  Serious: Yes (Life-Threatening, Hospitalization)
  Sender: FDA-Public Use
  Company Number: DSA_60376_2003

PATIENT
  Age: 4 Year
  Sex: Female
  Weight: 14 kg

DRUGS (1)
  1. DIASTAT [Suspect]
     Indication: CONVULSION
     Dosage: 10 MG ONCE RC
     Route: 054
     Dates: start: 20031208

REACTIONS (3)
  - CONDITION AGGRAVATED [None]
  - CONVULSION [None]
  - RESPIRATORY DEPRESSION [None]
